FAERS Safety Report 9120389 (Version 1)
Quarter: 2013Q1

REPORT INFORMATION
  Report Type: Spontaneous
  Country: US (occurrence: US)
  Receive Date: 20130226
  Receipt Date: 20130226
  Transmission Date: 20140127
  Serious: No
  Sender: FDA-Public Use
  Company Number: US-B.I. PHARMACEUTICALS,INC./RIDGEFIELD-2013-BI-04706BP

PATIENT
  Sex: Male

DRUGS (2)
  1. FLOMAX CAPSULES [Suspect]
     Indication: BENIGN PROSTATIC HYPERPLASIA
     Dosage: 0.8 MG
     Route: 048
  2. FLOMAX CAPSULES [Suspect]
     Dosage: 0.4 MG
     Route: 048

REACTIONS (1)
  - Drug ineffective [Unknown]
